FAERS Safety Report 8817746 (Version 6)
Quarter: 2015Q2

REPORT INFORMATION
  Report Type: Report from Study
  Country: JP (occurrence: JP)
  Receive Date: 20121001
  Receipt Date: 20150617
  Transmission Date: 20150821
  Serious: Yes (Hospitalization, Other)
  Sender: FDA-Public Use
  Company Number: PHHY2012JP084926

PATIENT
  Age: 65 Year
  Sex: Female
  Weight: 55 kg

DRUGS (31)
  1. BONOTEO [Suspect]
     Active Substance: MINODRONIC ACID
     Indication: OSTEOPOROSIS
     Dosage: 50 MG, QD
     Route: 048
     Dates: end: 20120516
  2. MOHRUS [Concomitant]
     Active Substance: KETOPROFEN
     Indication: COMPRESSION FRACTURE
     Route: 061
     Dates: start: 20120229, end: 20130328
  3. SOLU-MEDROL [Concomitant]
     Active Substance: METHYLPREDNISOLONE SODIUM SUCCINATE
     Indication: MULTIPLE SCLEROSIS
     Dosage: 1000 MG, QD
     Route: 051
     Dates: start: 20110525, end: 20110527
  4. SOLU-MEDROL [Concomitant]
     Active Substance: METHYLPREDNISOLONE SODIUM SUCCINATE
     Dosage: 1000 MG, QD
     Route: 051
     Dates: start: 20110601, end: 20110603
  5. SOLU-MEDROL [Concomitant]
     Active Substance: METHYLPREDNISOLONE SODIUM SUCCINATE
     Dosage: 1000 MG, QD
     Route: 051
     Dates: start: 20120215, end: 20120217
  6. GILENYA [Suspect]
     Active Substance: FINGOLIMOD HYDROCHLORIDE
     Dosage: 0.5 MG, QD
     Route: 048
     Dates: start: 20120608
  7. LOXONIN [Concomitant]
     Active Substance: LOXOPROFEN SODIUM
     Indication: COMPRESSION FRACTURE
     Dosage: 100 MG, QD
     Route: 061
     Dates: start: 20120229
  8. INTEBAN [Concomitant]
     Active Substance: INDOMETHACIN
     Indication: BACK PAIN
     Dosage: 1 G, QD
     Route: 061
     Dates: start: 20120229, end: 20121114
  9. LIORESAL [Concomitant]
     Active Substance: BACLOFEN
     Indication: MUSCLE SPASMS
     Dosage: 30 MG, QD
     Route: 048
  10. NABOAL [Concomitant]
     Indication: BACK PAIN
     Dosage: 1 G, QD
     Route: 061
     Dates: start: 20121115, end: 20130110
  11. RIVOTRIL [Suspect]
     Active Substance: CLONAZEPAM
     Indication: PAIN IN EXTREMITY
     Dosage: 0.5 MG, QD
     Route: 048
     Dates: end: 20120513
  12. ALFAROL [Concomitant]
     Active Substance: ALFACALCIDOL
     Indication: OSTEOPOROSIS
     Dosage: 1 UG, QD
     Route: 048
     Dates: start: 20120906
  13. GLAKAY [Concomitant]
     Active Substance: MENATETRENONE
     Indication: OSTEOPOROSIS
     Dosage: 45 MG, QD
     Route: 048
     Dates: start: 20120906
  14. AVONEX [Concomitant]
     Active Substance: INTERFERON BETA-1A
     Indication: MULTIPLE SCLEROSIS
     Dosage: 30 UG, QW
     Route: 030
     Dates: start: 20110825, end: 20120116
  15. TRAMCET [Concomitant]
     Active Substance: ACETAMINOPHEN\TRAMADOL
     Indication: BACK PAIN
     Dosage: 1 DF, PRN
     Route: 048
     Dates: start: 20130801
  16. HIRUDOID /OLD FORM/ [Concomitant]
     Indication: DERMATITIS
     Route: 061
     Dates: start: 20120229, end: 20130328
  17. MOBIC [Concomitant]
     Active Substance: MELOXICAM
     Indication: COMPRESSION FRACTURE
     Dosage: 10 MG, QD
     Route: 048
     Dates: start: 20121101
  18. GASTER [Concomitant]
     Active Substance: FAMOTIDINE
     Indication: GASTRIC ULCER
     Dosage: 20 MG, QD
     Route: 048
     Dates: end: 20130110
  19. MAGLAX [Concomitant]
     Active Substance: MAGNESIUM OXIDE
     Indication: CONSTIPATION
     Dosage: 1980 MG, QD
     Route: 048
  20. BETAFERON [Concomitant]
     Active Substance: INTERFERON BETA-1B
     Indication: PRODUCT USED FOR UNKNOWN INDICATION
     Dosage: 8 MIU, QOD
     Route: 058
     Dates: start: 20020711, end: 20110825
  21. SOLU-MEDROL [Concomitant]
     Active Substance: METHYLPREDNISOLONE SODIUM SUCCINATE
     Dosage: 1000 MG, QD
     Route: 051
     Dates: start: 20110608, end: 20110610
  22. SOLU-MEDROL [Concomitant]
     Active Substance: METHYLPREDNISOLONE SODIUM SUCCINATE
     Dosage: 1000 MG, QD
     Route: 051
     Dates: start: 20120208, end: 20120210
  23. VOLTAREN//DICLOFENAC SODIUM [Concomitant]
     Indication: BACK PAIN
     Dosage: 25 MG, QD
     Route: 048
     Dates: start: 20130704, end: 20130731
  24. TAPROS//TAFLUPROST [Concomitant]
     Indication: GLAUCOMA
     Dosage: 1 TO 2 DROPS
     Route: 031
     Dates: start: 20140128
  25. GILENYA [Suspect]
     Active Substance: FINGOLIMOD HYDROCHLORIDE
     Indication: MULTIPLE SCLEROSIS
     Dosage: 0.5 MG, QD
     Route: 048
     Dates: start: 20120221, end: 20120406
  26. ELCITONIN [Concomitant]
     Active Substance: ELCATONIN
     Indication: OSTEOPOROSIS
     Route: 051
     Dates: start: 20120210, end: 20120302
  27. LOXONIN [Concomitant]
     Active Substance: LOXOPROFEN SODIUM
     Indication: BACK PAIN
     Dosage: 60 MG, QD
     Route: 048
     Dates: end: 20130306
  28. EBRANTIL [Concomitant]
     Active Substance: URAPIDIL
     Indication: NEUROGENIC BLADDER
     Dosage: 60 MG, QD
     Route: 048
  29. CEFCAPENE PIVOXIL HYDROCHLORIDE [Concomitant]
     Active Substance: CEFCAPENE PIVOXIL HYDROCHLORIDE
     Indication: PERIODONTITIS
     Dosage: 300 MG, QD
     Route: 048
     Dates: start: 20130307, end: 20130309
  30. SOLU-MEDROL [Concomitant]
     Active Substance: METHYLPREDNISOLONE SODIUM SUCCINATE
     Dosage: 1000 MG, QD
     Route: 051
     Dates: start: 20120203, end: 20120205
  31. HYALEIN [Concomitant]
     Active Substance: HYALURONATE SODIUM
     Indication: DRY EYE
     Dosage: 1 TO 2 DROPS
     Route: 031
     Dates: start: 20131114

REACTIONS (3)
  - Hepatic function abnormal [Recovering/Resolving]
  - Hepatic function abnormal [Recovered/Resolved]
  - Herpes zoster [Recovered/Resolved]

NARRATIVE: CASE EVENT DATE: 20120228
